FAERS Safety Report 5522567-2 (Version None)
Quarter: 2007Q4

REPORT INFORMATION
  Report Type: 
  Country: None (occurrence: None)
  Receive Date: 20071120
  Receipt Date: 20071108
  Transmission Date: 20080405
  Serious: Yes (Hospitalization)
  Sender: FDA-Public Use
  Company Number: FR-PFIZER INC-2007094469

PATIENT
  Age: 49 Year
  Sex: Female

DRUGS (2)
  1. XANAX [Suspect]
     Indication: DEPRESSION
     Dosage: TEXT:4 DF DAILY  TDD:4 DF
     Route: 048
     Dates: start: 20040901, end: 20051201
  2. STABLON [Suspect]
     Indication: DEPRESSION
     Route: 048
     Dates: start: 20040901, end: 20051201

REACTIONS (2)
  - EPILEPSY [None]
  - MYALGIA [None]
